FAERS Safety Report 11836364 (Version 1)
Quarter: 2015Q4

REPORT INFORMATION
  Report Type: Spontaneous
  Country: US (occurrence: None)
  Receive Date: 20151214
  Receipt Date: 20151214
  Transmission Date: 20160305
  Serious: Yes (Hospitalization)
  Sender: FDA-Public Use
  Company Number: None

PATIENT
  Age: 61 Year
  Sex: Female

DRUGS (1)
  1. HARVONI [Suspect]
     Active Substance: LEDIPASVIR\SOFOSBUVIR
     Indication: HIV INFECTION
     Dosage: 1 PILL QD
     Route: 048
     Dates: start: 20151202, end: 20151211

REACTIONS (1)
  - Cellulitis [None]

NARRATIVE: CASE EVENT DATE: 20151202
